FAERS Safety Report 5456955-X (Version None)
Quarter: 2007Q3

REPORT INFORMATION
  Report Type: 
  Country: None (occurrence: None)
  Receive Date: 20070918
  Receipt Date: 20061205
  Transmission Date: 20080115
  Serious: No
  Sender: FDA-Public Use
  Company Number: US-ASTRAZENECA-2006UW27071

PATIENT
  Age: 65 Year
  Sex: Female
  Weight: 68 kg

DRUGS (4)
  1. SEROQUEL [Suspect]
     Indication: BIPOLAR DISORDER
     Route: 048
     Dates: start: 20020101
  2. BONIVA [Concomitant]
  3. EFFEXOR XR [Concomitant]
  4. LEXAPRO [Concomitant]

REACTIONS (3)
  - HYPERTENSION [None]
  - MUSCLE TIGHTNESS [None]
  - TREMOR [None]
